FAERS Safety Report 22225363 (Version 1)
Quarter: 2023Q2

REPORT INFORMATION
  Report Type: Spontaneous
  Country: US (occurrence: US)
  Receive Date: 20230418
  Receipt Date: 20230418
  Transmission Date: 20230721
  Serious: No
  Sender: FDA-Public Use
  Company Number: US-THERATECHNOLOGIES INC.-2022-THE-TES-000322

PATIENT

DRUGS (1)
  1. EGRIFTA SV [Suspect]
     Active Substance: TESAMORELIN ACETATE
     Indication: Lipodystrophy acquired
     Dosage: 1.4 MG, QD
     Route: 058
     Dates: start: 20220316, end: 20221222

REACTIONS (6)
  - Eczema [Recovering/Resolving]
  - Skin injury [Recovering/Resolving]
  - Skin discolouration [Recovering/Resolving]
  - Purulent discharge [Recovering/Resolving]
  - Injection site pruritus [Recovering/Resolving]
  - Injection site irritation [Unknown]

NARRATIVE: CASE EVENT DATE: 20221222
